FAERS Safety Report 17756367 (Version 1)
Quarter: 2020Q2

REPORT INFORMATION
  Report Type: Spontaneous
  Country: FR (occurrence: FR)
  Receive Date: 20200507
  Receipt Date: 20200507
  Transmission Date: 20200714
  Serious: Yes (Hospitalization)
  Sender: FDA-Public Use
  Company Number: FR-CADILA HEALTHCARE LIMITED-FR-ZYDUS-021252

PATIENT

DRUGS (6)
  1. LEPTICUR [Concomitant]
     Active Substance: TROPATEPINE HYDROCHLORIDE
     Indication: PRODUCT USED FOR UNKNOWN INDICATION
     Dosage: 30 MILLIGRAM,(INTERVAL :1 DAYS)
     Route: 048
  2. QUETIAPINE. [Suspect]
     Active Substance: QUETIAPINE
     Indication: SCHIZOPHRENIA
     Dosage: 150 MILLIGRAM,(INTERVAL :1 DAYS)
     Route: 048
     Dates: start: 20141201
  3. LOXAPAC [Concomitant]
     Active Substance: LOXAPINE
     Indication: SCHIZOPHRENIA
     Dosage: PUNCTUALLY IF NEEDED
     Route: 048
  4. RISPERIDONE. [Suspect]
     Active Substance: RISPERIDONE
     Indication: SCHIZOPHRENIA
     Dosage: 12 MILLIGRAM,(INTERVAL :1 DAYS)
     Route: 048
     Dates: start: 20110101
  5. RISPERIDONE. [Suspect]
     Active Substance: RISPERIDONE
     Indication: SCHIZOPHRENIA
     Dosage: 50 MILLIGRAM,(INTERVAL :2 WEEKS)
     Route: 030
     Dates: start: 20110101
  6. ALPRAZOLAM. [Concomitant]
     Active Substance: ALPRAZOLAM
     Indication: PRODUCT USED FOR UNKNOWN INDICATION
     Dosage: 1 MILLIGRAM,(INTERVAL :1 DAYS)
     Route: 048

REACTIONS (1)
  - Deep vein thrombosis [Recovered/Resolved]

NARRATIVE: CASE EVENT DATE: 20161010
